FAERS Safety Report 10717741 (Version 14)
Quarter: 2022Q1

REPORT INFORMATION
  Report Type: Spontaneous
  Country: US (occurrence: US)
  Receive Date: 20150116
  Receipt Date: 20220304
  Transmission Date: 20220423
  Serious: Yes (Disabling, Other)
  Sender: FDA-Public Use
  Company Number: US-PFIZER INC-2015018587

PATIENT
  Age: 47 Year
  Sex: Female
  Weight: 122 kg

DRUGS (25)
  1. LYRICA [Suspect]
     Active Substance: PREGABALIN
     Indication: Nerve injury
     Dosage: 300 MG, 3X/DAY
     Route: 048
  2. LYRICA [Suspect]
     Active Substance: PREGABALIN
     Indication: Spinal cord injury
     Dosage: 300 MG, 3X/DAY (4 PILLS OF 75 MG THRICE A DAY)
     Route: 048
  3. LYRICA [Suspect]
     Active Substance: PREGABALIN
     Indication: Pain
     Dosage: 300 MG, (TAKE 1 CAPSULE BY MOUTH 3 TIMES DAILY)
     Route: 048
     Dates: start: 20140313
  4. LYRICA [Suspect]
     Active Substance: PREGABALIN
     Indication: Burning sensation
  5. TIZANIDINE HYDROCHLORIDE [Concomitant]
     Active Substance: TIZANIDINE HYDROCHLORIDE
     Indication: Back pain
     Dosage: 4 MG, AS NEEDED (1 BID PRN)
  6. TIZANIDINE HYDROCHLORIDE [Concomitant]
     Active Substance: TIZANIDINE HYDROCHLORIDE
     Indication: Neck pain
  7. VOLTAREN [Concomitant]
     Active Substance: DICLOFENAC SODIUM
     Dosage: UNK, (USE AS DIRECTED)
  8. NORTRIPTYLINE HYDROCHLORIDE [Concomitant]
     Active Substance: NORTRIPTYLINE HYDROCHLORIDE
     Dosage: 30 MG, DAILY (EVERY NIGHT AT BEDTIME)
     Route: 048
  9. RIBOFLAVIN [Concomitant]
     Active Substance: RIBOFLAVIN
     Dosage: 400 MG, 2X/DAY
     Route: 048
  10. MAGNESIUM OXIDE [Concomitant]
     Active Substance: MAGNESIUM OXIDE
     Dosage: 400 MG, 2X/DAY
     Route: 048
  11. VERELAN PM [Concomitant]
     Active Substance: VERAPAMIL HYDROCHLORIDE
     Indication: Migraine prophylaxis
     Dosage: 200 MG, 1X/DAY (EVERY NIGHT AT BEDTIME)
     Route: 048
  12. FOLIC ACID [Concomitant]
     Active Substance: FOLIC ACID
     Dosage: 1 MG, 2X/DAY
     Route: 048
  13. VITAMIN B6 [Concomitant]
     Active Substance: PYRIDOXINE HYDROCHLORIDE
     Dosage: 50 MG, DAILY
     Route: 048
  14. IMITREX [Concomitant]
     Active Substance: SUMATRIPTAN SUCCINATE
     Dosage: UNK, AS NEEDED
  15. FIORICET [Concomitant]
     Active Substance: ACETAMINOPHEN\BUTALBITAL\CAFFEINE
     Indication: Migraine
     Dosage: 1 DF, AS NEEDED, (EVE HOURS)
     Route: 048
  16. FLONASE [Concomitant]
     Active Substance: FLUTICASONE PROPIONATE
     Dosage: UNK, 1X/DAY
  17. ALEVE [Concomitant]
     Active Substance: NAPROXEN SODIUM
     Indication: Hypersensitivity
     Dosage: UNK
  18. MOTRIN IB [Concomitant]
     Active Substance: IBUPROFEN
     Indication: Hypersensitivity
     Dosage: UNK
  19. OXYBUTYNIN [Concomitant]
     Active Substance: OXYBUTYNIN
     Dosage: 10 MG, 3X/DAY (EVERY NIGHT AT BEDTIME)
     Route: 048
  20. FLEXERIL [Concomitant]
     Active Substance: CYCLOBENZAPRINE HYDROCHLORIDE
     Indication: Neck pain
     Dosage: 10 MG, AS NEEDED (THREE TIMES A DAY)
     Route: 048
  21. FLEXERIL [Concomitant]
     Active Substance: CYCLOBENZAPRINE HYDROCHLORIDE
     Indication: Back pain
  22. TOPAMAX [Concomitant]
     Active Substance: TOPIRAMATE
     Indication: Migraine prophylaxis
     Dosage: 200 MG, DAILY (MORNING)
     Route: 048
  23. TOPAMAX [Concomitant]
     Active Substance: TOPIRAMATE
     Dosage: 300 MG, DAILY (AT NIGHT)
     Route: 048
  24. BENADRYL [Concomitant]
     Active Substance: DIPHENHYDRAMINE HYDROCHLORIDE
     Indication: Sleep disorder
     Dosage: 100 MG, (4 TABLETS FOR TOTAL 100 MG OF BENADRYL)
  25. BENADRYL [Concomitant]
     Active Substance: DIPHENHYDRAMINE HYDROCHLORIDE
     Indication: Hypersensitivity
     Dosage: UNK (25 MG TWICE DURING THE DAY, 2 TABLETS AT NIGHT)
     Route: 048

REACTIONS (23)
  - Transient ischaemic attack [Unknown]
  - Suicidal ideation [Unknown]
  - Neuropathy peripheral [Unknown]
  - Cerebrovascular accident [Unknown]
  - Hypoaesthesia [Not Recovered/Not Resolved]
  - Paraesthesia [Not Recovered/Not Resolved]
  - Insomnia [Not Recovered/Not Resolved]
  - Fatigue [Not Recovered/Not Resolved]
  - Fluid retention [Not Recovered/Not Resolved]
  - Weight increased [Not Recovered/Not Resolved]
  - Fall [Unknown]
  - Ankle fracture [Recovering/Resolving]
  - Drug ineffective [Unknown]
  - Prescribed overdose [Unknown]
  - Intentional product use issue [Unknown]
  - Pain [Unknown]
  - Arthralgia [Unknown]
  - Memory impairment [Unknown]
  - Migraine [Unknown]
  - Spinal osteoarthritis [Unknown]
  - Hyperhomocysteinaemia [Unknown]
  - Psychiatric symptom [Unknown]
  - Feeling abnormal [Unknown]

NARRATIVE: CASE EVENT DATE: 20140313
